FAERS Safety Report 6129124-8 (Version None)
Quarter: 2009Q1

REPORT INFORMATION
  Report Type: 
  Country: None (occurrence: None)
  Receive Date: 20090320
  Receipt Date: 20090311
  Transmission Date: 20090719
  Serious: Yes (Death)
  Sender: FDA-Public Use
  Company Number: GXKR2009JP03176

PATIENT
  Age: 62 Year
  Sex: Male

DRUGS (20)
  1. CYCLOSPORINE [Suspect]
     Indication: PROPHYLAXIS AGAINST GRAFT VERSUS HOST DISEASE
     Dosage: 3 MG/KG, CONT (FROM DAY -1), INFUSION
  2. FLUDARABINE PHOSPHATE [Concomitant]
  3. MELPHALAN (MELPHALAN) [Concomitant]
  4. IRRADIATION (NO INGREDIENTS/SUBSTANCES) [Concomitant]
  5. POLYMYXIN B SULFATE [Concomitant]
  6. HEPARIN [Concomitant]
  7. GLYCYRRHIZINATE POTASSIUM (GLYCYRRHIZINITE POTASSIUM) [Concomitant]
  8. MENATETRENONE (MENATETRENONE) [Concomitant]
  9. CEFPIROME (CEFPIROME) [Concomitant]
  10. IMIPENEM (IMIPENEM) [Concomitant]
  11. IMMUNE GLOBULIN (HUMAN) [Concomitant]
  12. ALBUMIN NOS (ALBUMIN NOS) [Concomitant]
  13. HYDROXYZINE [Concomitant]
  14. FUROSEMIDE [Concomitant]
  15. METOCLOPRAMIDE [Concomitant]
  16. SULFAMETHOXAZOLE W/TRIMETHOPRIM (SULFAMETHOXAZOLE, TRIMETHOPRIM) [Concomitant]
  17. FLUOROQUINOLONES (NO INGREDIENTS/SUBSTANCES) [Concomitant]
  18. FLUCONAZOLE [Concomitant]
  19. ACYCLOVIR [Concomitant]
  20. G-CSF (GRANULOCYTE COLONY STIMULATING FACTOR) [Concomitant]

REACTIONS (6)
  - CONVULSION [None]
  - DEPRESSED LEVEL OF CONSCIOUSNESS [None]
  - ENCEPHALOPATHY [None]
  - ENGRAFTMENT SYNDROME [None]
  - MULTI-ORGAN FAILURE [None]
  - TYPE III IMMUNE COMPLEX MEDIATED REACTION [None]
